FAERS Safety Report 6275839-0 (Version None)
Quarter: 2009Q3

REPORT INFORMATION
  Report Type: 
  Country: None (occurrence: None)
  Receive Date: 20090717
  Receipt Date: 20090709
  Transmission Date: 20100115
  Serious: Yes (Other)
  Sender: FDA-Public Use
  Company Number: ADR6892009

PATIENT
  Age: 78 Year
  Sex: Male

DRUGS (2)
  1. SIMVASTATIN [Suspect]
  2. CLARITHROMYCIN [Concomitant]

REACTIONS (2)
  - MYOPATHY [None]
  - RHABDOMYOLYSIS [None]
